FAERS Safety Report 6467845-8 (Version None)
Quarter: 2009Q4

REPORT INFORMATION
  Report Type: 
  Country: None (occurrence: None)
  Receive Date: 20091119
  Receipt Date: 20090906
  Transmission Date: 20100525
  Serious: Yes (Other)
  Sender: FDA-Public Use
  Company Number: WAES 0909USA04848

PATIENT
  Age: 44 Year
  Sex: Male

DRUGS (6)
  1. JANUVIA [Suspect]
     Dosage: PO
     Route: 048
     Dates: start: 20090611, end: 20090825
  2. JANUMET [Suspect]
     Indication: PANCREATITIS
     Dosage: 1000 MG /50
     Dates: start: 20090611, end: 20090828
  3. FLOMAX (MORNIFLUMATE) [Concomitant]
  4. INSPRA [Concomitant]
  5. GLYBURIDE [Concomitant]
  6. PHENOBARBITAL [Concomitant]

REACTIONS (2)
  - OFF LABEL USE [None]
  - PANCREATITIS ACUTE [None]
